FAERS Safety Report 24192057 (Version 2)
Quarter: 2025Q3

REPORT INFORMATION
  Report Type: Spontaneous
  Country: US (occurrence: US)
  Receive Date: 20240809
  Receipt Date: 20250915
  Transmission Date: 20251021
  Serious: No
  Sender: ELI LILLY AND COMPANY
  Company Number: US-ELI_LILLY_AND_COMPANY-US202408004278

PATIENT
  Age: 76 Year
  Sex: Female

DRUGS (4)
  1. TRULICITY [Suspect]
     Active Substance: DULAGLUTIDE
     Indication: Diabetes mellitus
     Route: 058
  2. TRULICITY [Suspect]
     Active Substance: DULAGLUTIDE
     Route: 058
  3. TRULICITY [Suspect]
     Active Substance: DULAGLUTIDE
     Route: 058
  4. INSULIN NOS [Concomitant]
     Active Substance: INSULIN NOS
     Indication: Product used for unknown indication
     Route: 065

REACTIONS (6)
  - Thermal burn [Unknown]
  - Drug ineffective [Unknown]
  - Blood glucose increased [Unknown]
  - Nausea [Unknown]
  - Vomiting [Unknown]
  - Malaise [Unknown]
